FAERS Safety Report 19143406 (Version 1)
Quarter: 2021Q2

REPORT INFORMATION
  Report Type: Spontaneous
  Country: US (occurrence: US)
  Receive Date: 20210416
  Receipt Date: 20210416
  Transmission Date: 20210717
  Serious: No
  Sender: FDA-Public Use
  Company Number: US-TARO-2021TAR00050

PATIENT

DRUGS (1)
  1. FLUOROURACIL TOPICAL CREAM USP 5% [Suspect]
     Active Substance: FLUOROURACIL
     Indication: BASAL CELL CARCINOMA
     Dosage: QD, SMALL AMOUNT NEAR RIGHT OF MY EYE. JUST A DAB AT BEDTIME
     Route: 065
     Dates: start: 20210102, end: 20210107

REACTIONS (5)
  - Blister [Not Recovered/Not Resolved]
  - Drug ineffective [Unknown]
  - Rash [Not Recovered/Not Resolved]
  - Off label use [Unknown]
  - Deformity [Not Recovered/Not Resolved]

NARRATIVE: CASE EVENT DATE: 202101
